FAERS Safety Report 24623904 (Version 4)
Quarter: 2025Q4

REPORT INFORMATION
  Report Type: Report from Study
  Country: CA (occurrence: CA)
  Receive Date: 20241115
  Receipt Date: 20251119
  Transmission Date: 20260118
  Serious: Yes (Other)
  Sender: SANDOZ
  Company Number: CA-002147023-NVSC2022CA241414

PATIENT
  Age: 46 Year
  Sex: Female

DRUGS (2)
  1. HYRIMOZ [Suspect]
     Active Substance: ADALIMUMAB-ADAZ
     Indication: Crohn^s disease
     Dosage: 80 MG, BIWEEKLY
     Route: 058
     Dates: start: 20220530
  2. HYRIMOZ [Suspect]
     Active Substance: ADALIMUMAB-ADAZ
     Dosage: 80 MG, BIWEEKLY (PRE-FILLED SYRINGE)
     Route: 058
     Dates: start: 20220530

REACTIONS (8)
  - Spinal fracture [Unknown]
  - Road traffic accident [Unknown]
  - Crohn^s disease [Unknown]
  - Post procedural infection [Recovered/Resolved]
  - Decreased immune responsiveness [Unknown]
  - Diarrhoea [Recovering/Resolving]
  - Viral infection [Recovered/Resolved]
  - Off label use [Unknown]

NARRATIVE: CASE EVENT DATE: 20220530
